FAERS Safety Report 4558683-1 (Version None)
Quarter: 2005Q1

REPORT INFORMATION
  Report Type: 
  Country: None (occurrence: None)
  Receive Date: 20050119
  Receipt Date: 20050106
  Transmission Date: 20050727
  Serious: Yes (Other)
  Sender: FDA-Public Use
  Company Number: 2005003284

PATIENT
  Sex: Female

DRUGS (4)
  1. ZOLOFT [Suspect]
     Indication: DEPRESSION
  2. AMITRIPTYLINE HYDROCHLORIDE [Suspect]
     Indication: DEPRESSION
  3. FLUOXETINE HYDROCHLORIDE [Suspect]
     Indication: DEPRESSION
  4. FLUOXETINE [Suspect]
     Indication: DEPRESSION

REACTIONS (8)
  - ABNORMAL BEHAVIOUR [None]
  - DEPRESSION [None]
  - PREMENSTRUAL SYNDROME [None]
  - REFUSAL OF TREATMENT BY PATIENT [None]
  - SELF-MEDICATION [None]
  - SUICIDE ATTEMPT [None]
  - THINKING ABNORMAL [None]
  - WEIGHT INCREASED [None]
